FAERS Safety Report 6138000-6 (Version None)
Quarter: 2009Q1

REPORT INFORMATION
  Report Type: 
  Country: None (occurrence: None)
  Receive Date: 20090331
  Receipt Date: 20090323
  Transmission Date: 20090719
  Serious: Yes (Death, Other)
  Sender: FDA-Public Use
  Company Number: US-ROCHE-618632

PATIENT
  Age: 65 Year
  Sex: Male

DRUGS (10)
  1. TAMIFLU [Suspect]
     Route: 065
  2. COREG [Concomitant]
  3. DUONEB [Concomitant]
  4. LASIX [Concomitant]
  5. PEPCID [Concomitant]
  6. PULMICORT-100 [Concomitant]
  7. RESTORIL [Concomitant]
  8. SOMA [Concomitant]
  9. SINGULAIR [Concomitant]
  10. LISINOPRIL [Concomitant]

REACTIONS (3)
  - CHRONIC OBSTRUCTIVE PULMONARY DISEASE [None]
  - CORONARY ARTERY DISEASE [None]
  - RESPIRATORY FAILURE [None]
